FAERS Safety Report 6706899-8 (Version None)
Quarter: 2010Q2

REPORT INFORMATION
  Report Type: 
  Country: None (occurrence: None)
  Receive Date: 20100430
  Receipt Date: 20100430
  Transmission Date: 20101027
  Serious: Yes (Other)
  Sender: FDA-Public Use
  Company Number: None

PATIENT
  Age: 17 Year
  Sex: Male
  Weight: 75 kg

DRUGS (1)
  1. FINASTERIDE [Suspect]
     Indication: ALOPECIA
     Dosage: 0.25 2 PO
     Route: 048
     Dates: start: 20030301, end: 20030315

REACTIONS (3)
  - ERECTILE DYSFUNCTION [None]
  - LOSS OF LIBIDO [None]
  - SEMEN ANALYSIS ABNORMAL [None]
